FAERS Safety Report 8222518-6 (Version None)
Quarter: 2012Q1

REPORT INFORMATION
  Report Type: 
  Country: None (occurrence: None)
  Receive Date: 20120312
  Receipt Date: 20120301
  Transmission Date: 20120608
  Serious: Yes (Hospitalization)
  Sender: FDA-Public Use
  Company Number: 7116548

PATIENT
  Age: 66 Year
  Sex: Female

DRUGS (4)
  1. HYDROCORTONE [Concomitant]
  2. NIFEDIPINE [Concomitant]
  3. LEVOTHYROXINE SODIUM [Suspect]
     Indication: POSTPARTUM HYPOPITUITARISM
     Dates: start: 20000101
  4. FENOFIBRATE [Suspect]
     Indication: DYSLIPIDAEMIA
     Dates: start: 20100610, end: 20100809

REACTIONS (2)
  - DRUG RASH WITH EOSINOPHILIA AND SYSTEMIC SYMPTOMS [None]
  - RENAL IMPAIRMENT [None]
